FAERS Safety Report 5604437-4 (Version None)
Quarter: 2008Q1

REPORT INFORMATION
  Report Type: 
  Country: None (occurrence: None)
  Receive Date: 20080123
  Receipt Date: 20080123
  Transmission Date: 20080703
  Serious: No
  Sender: FDA-Public Use
  Company Number: None

PATIENT
  Sex: Male
  Weight: 121 kg

DRUGS (1)
  1. CHANTIX [Suspect]
     Indication: SMOKING CESSATION THERAPY
     Dosage: STARTER PACK  PO
     Route: 048
     Dates: start: 20071116, end: 20071130

REACTIONS (3)
  - AGITATION [None]
  - MOOD SWINGS [None]
  - THINKING ABNORMAL [None]
